FAERS Safety Report 9691303 (Version 2)
Quarter: 2013Q4

REPORT INFORMATION
  Report Type: Spontaneous
  Country: US (occurrence: US)
  Receive Date: 20131115
  Receipt Date: 20131115
  Transmission Date: 20140711
  Serious: Yes (Hospitalization, Disabling, Other)
  Sender: FDA-Public Use
  Company Number: US-MYLANLABS-2013S1025496

PATIENT
  Sex: Male

DRUGS (1)
  1. ROCURONIUM BROMIDE INJECTION [Suspect]
     Dates: start: 201304, end: 201304

REACTIONS (3)
  - Cognitive disorder [Not Recovered/Not Resolved]
  - Physical disability [Not Recovered/Not Resolved]
  - Wrong drug administered [Recovered/Resolved]
